FAERS Safety Report 12171447 (Version 3)
Quarter: 2016Q3

REPORT INFORMATION
  Report Type: Spontaneous
  Country: GB (occurrence: GB)
  Receive Date: 20160311
  Receipt Date: 20160722
  Transmission Date: 20161109
  Serious: Yes (Disabling)
  Sender: FDA-Public Use
  Company Number: ALCN2016GB001648

PATIENT
  Age: 78 Year
  Sex: Male

DRUGS (2)
  1. MAXITROL [Suspect]
     Active Substance: DEXAMETHASONE\NEOMYCIN SULFATE\POLYMYXIN B SULFATE
     Indication: POSTOPERATIVE CARE
     Dosage: UNK
     Route: 047
  2. ACULAR [Interacting]
     Active Substance: KETOROLAC TROMETHAMINE
     Indication: POSTOPERATIVE CARE
     Dosage: UNK
     Route: 047

REACTIONS (5)
  - Corneal dystrophy [Unknown]
  - Drug interaction [Unknown]
  - Ulcerative keratitis [Not Recovered/Not Resolved]
  - Blindness [Not Recovered/Not Resolved]
  - Corneal scar [Not Recovered/Not Resolved]
